FAERS Safety Report 7504225-8 (Version None)
Quarter: 2011Q2

REPORT INFORMATION
  Report Type: 
  Country: None (occurrence: None)
  Receive Date: 20110525
  Receipt Date: 20110510
  Transmission Date: 20111010
  Serious: Yes (Other)
  Sender: FDA-Public Use
  Company Number: US-BAYER-2010-002109

PATIENT
  Sex: Male

DRUGS (12)
  1. LEVOTHYROXINE SODIUM [Concomitant]
  2. ACETYLSALICYLIC ACID SRT [Concomitant]
  3. ALLOPURINOL [Concomitant]
  4. TRASYLOL [Suspect]
     Indication: CARDIAC NEOPLASM UNSPECIFIED
     Dosage: UNK
     Route: 042
     Dates: start: 20020102
  5. PLAVIX [Concomitant]
  6. GLYBURIDE [Concomitant]
  7. TRASYLOL [Suspect]
     Indication: VENTRICULAR SEPTAL DEFECT REPAIR
  8. CARVEDILOL [Concomitant]
  9. TRASYLOL [Suspect]
  10. TRASYLOL [Suspect]
     Indication: CORONARY ARTERY BYPASS
     Dosage: UNK
     Route: 042
     Dates: start: 20061128
  11. TRASYLOL [Suspect]
     Indication: AORTIC VALVE REPLACEMENT
  12. LASIX [Concomitant]

REACTIONS (8)
  - INJURY [None]
  - PAIN [None]
  - EMOTIONAL DISTRESS [None]
  - FEAR [None]
  - RENAL FAILURE [None]
  - ANXIETY [None]
  - STRESS [None]
  - UNEVALUABLE EVENT [None]
